FAERS Safety Report 4928239-7 (Version None)
Quarter: 2006Q1

REPORT INFORMATION
  Report Type: 
  Country: None (occurrence: None)
  Receive Date: 20060223
  Receipt Date: 20060211
  Transmission Date: 20060701
  Serious: Yes (Life-Threatening, Other)
  Sender: FDA-Public Use
  Company Number: 2005151229

PATIENT
  Age: 21 Year
  Sex: Female

DRUGS (4)
  1. GEODON [Suspect]
     Indication: BIPOLAR II DISORDER
     Dosage: 160 MG (80 MG, 2 IN 1 D)
  2. EFFEXOR [Concomitant]
  3. LAMICTAL [Concomitant]
  4. ATIVAN [Concomitant]

REACTIONS (4)
  - DYSPNOEA [None]
  - EXTRAPYRAMIDAL DISORDER [None]
  - MUSCLE SPASMS [None]
  - MUSCLE TIGHTNESS [None]
